FAERS Safety Report 8966269 (Version 1)
Quarter: 2012Q4

REPORT INFORMATION
  Report Type: 
  Country: JP (occurrence: JP)
  Receive Date: 20121214
  Receipt Date: 20121214
  Transmission Date: 20130627
  Serious: Yes (Other)
  Sender: FDA-Public Use
  Company Number: JP-GENZYME-THYM-1003521

PATIENT
  Age: 38 Year
  Sex: Male

DRUGS (3)
  1. THYMOGLOBULINE [Suspect]
     Indication: BONE MARROW CONDITIONING REGIMEN
     Dosage: UNK
     Route: 042
  2. FLUDARA [Suspect]
     Indication: BONE MARROW CONDITIONING REGIMEN
     Dosage: UNK
     Route: 065
  3. ETOPOSIDE [Concomitant]
     Indication: BONE MARROW CONDITIONING REGIMEN
     Dosage: UNK
     Route: 065

REACTIONS (6)
  - Retinopathy [Recovered/Resolved]
  - Meningitis viral [Recovered/Resolved]
  - Cytomegalovirus test positive [Recovered/Resolved]
  - Meningitis viral [Unknown]
  - Neutropenia [Unknown]
  - Thrombocytopenia [Unknown]
